FAERS Safety Report 21163906 (Version 1)
Quarter: 2022Q3

REPORT INFORMATION
  Report Type: Spontaneous
  Country: CZ (occurrence: CZ)
  Receive Date: 20220803
  Receipt Date: 20220803
  Transmission Date: 20221027
  Serious: Yes (Other)
  Sender: FDA-Public Use
  Company Number: CZ-CELLTRION INC.-2022CZ012071

PATIENT

DRUGS (1)
  1. INFLIXIMAB [Suspect]
     Active Substance: INFLIXIMAB
     Indication: Product used for unknown indication
     Route: 058

REACTIONS (1)
  - Laparoscopic surgery [Recovered/Resolved]

NARRATIVE: CASE EVENT DATE: 20220328
